FAERS Safety Report 12675698 (Version 1)
Quarter: 2016Q3

REPORT INFORMATION
  Report Type: Spontaneous
  Country: US (occurrence: US)
  Receive Date: 20160823
  Receipt Date: 20160823
  Transmission Date: 20161109
  Serious: No
  Sender: FDA-Public Use
  Company Number: US-JAZZ-2016-US-006515

PATIENT
  Sex: Female

DRUGS (8)
  1. METHYLPHENIDATE. [Concomitant]
     Active Substance: METHYLPHENIDATE
  2. BUPROPION HCL [Concomitant]
     Active Substance: BUPROPION HYDROCHLORIDE
  3. NEXIUM [Concomitant]
     Active Substance: ESOMEPRAZOLE MAGNESIUM
  4. XYREM [Suspect]
     Active Substance: SODIUM OXYBATE
     Dosage: 3 G, BID
     Route: 048
     Dates: start: 201603
  5. LORATADINE. [Concomitant]
     Active Substance: LORATADINE
  6. XYREM [Suspect]
     Active Substance: SODIUM OXYBATE
     Indication: NARCOLEPSY
     Dosage: 3 G, BID
     Route: 048
     Dates: start: 201308
  7. MODAFINIL. [Concomitant]
     Active Substance: MODAFINIL
  8. RANITIDINE. [Concomitant]
     Active Substance: RANITIDINE

REACTIONS (3)
  - Somnolence [Not Recovered/Not Resolved]
  - Hangover [Not Recovered/Not Resolved]
  - Fatigue [Not Recovered/Not Resolved]
